FAERS Safety Report 6538856-9 (Version None)
Quarter: 2010Q1

REPORT INFORMATION
  Report Type: 
  Country: None (occurrence: None)
  Receive Date: 20100112
  Receipt Date: 20091218
  Transmission Date: 20100710
  Serious: Yes (Hospitalization, Other)
  Sender: FDA-Public Use
  Company Number: AUR-APL-2009-01329

PATIENT
  Age: 42 Year
  Sex: Female

DRUGS (6)
  1. METFORMIN [Suspect]
     Dosage: 500MG, TID,
  2. DICLOFENAC SODIUM [Suspect]
     Dosage: 75MG, BID,
  3. NORTRIPTYLINE [Suspect]
     Dosage: 10MG - DAILY - ORAL
     Route: 048
  4. RIZATRIPTAN BENZOATE [Suspect]
     Dosage: 10MG
  5. TEMAZEPAM [Suspect]
     Dosage: 10MG - DAILY -
  6. CO-PROXAMOL (DI-GESIC) [Suspect]

REACTIONS (15)
  - ABDOMINAL PAIN [None]
  - COLONIC STENOSIS [None]
  - DIARRHOEA [None]
  - DUODENAL ULCER [None]
  - GASTRITIS [None]
  - HAEMATEMESIS [None]
  - HAEMOGLOBIN DECREASED [None]
  - HEPATIC STEATOSIS [None]
  - IRRITABLE BOWEL SYNDROME [None]
  - OESOPHAGITIS ULCERATIVE [None]
  - PALLOR [None]
  - PLATELET COUNT INCREASED [None]
  - REFLUX OESOPHAGITIS [None]
  - VOMITING [None]
  - WEIGHT DECREASED [None]
